FAERS Safety Report 9461553 (Version 1)
Quarter: 2013Q3

REPORT INFORMATION
  Report Type: Spontaneous
  Country: US (occurrence: US)
  Receive Date: 20130816
  Receipt Date: 20130816
  Transmission Date: 20140515
  Serious: Yes (Other)
  Sender: FDA-Public Use
  Company Number: US-BRISTOL-MYERS SQUIBB COMPANY-19167360

PATIENT
  Age: 59 Year
  Sex: Female
  Weight: 71.65 kg

DRUGS (2)
  1. ABILIFY [Suspect]
     Indication: DEPRESSION
  2. ZOLOFT [Suspect]

REACTIONS (2)
  - Thyroid cancer [Unknown]
  - Pain in jaw [Unknown]
